FAERS Safety Report 8885627 (Version 2)
Quarter: 2012Q4

REPORT INFORMATION
  Report Type: Report from Study
  Country: DE (occurrence: DE)
  Receive Date: 20121102
  Receipt Date: 20121109
  Transmission Date: 20130627
  Serious: Yes (Hospitalization)
  Sender: FDA-Public Use
  Company Number: DE-AMGEN-DEUCT2012067708

PATIENT
  Age: 75 Year
  Sex: Male
  Weight: 75 kg

DRUGS (16)
  1. ETANERCEPT [Suspect]
     Indication: RHEUMATOID ARTHRITIS
     Dosage: 50 mg, 1x weekly
     Dates: start: 20110829, end: 20120903
  2. RAMIPRIL [Concomitant]
     Indication: HYPERTENSION
     Dosage: 5 mg, 2x/day
     Dates: start: 200904
  3. TORASEMIDE [Concomitant]
     Dosage: 10 mg, 1x/day
     Dates: start: 200904
  4. AMLODIPINE [Concomitant]
     Dosage: 5 mg, UNK
     Dates: start: 200904
  5. ACTONEL [Concomitant]
     Indication: OSTEOPENIA
     Dosage: 20 mg, monthly
     Dates: start: 200903
  6. VITAMIN B12                        /00056201/ [Concomitant]
     Indication: VITAMIN B12 DEFICIENCY
     Dosage: 1000 mg, 1x/day
     Dates: start: 200904
  7. METEX                              /00082702/ [Concomitant]
     Indication: RHEUMATOID ARTHRITIS
     Dosage: 15 mg, qwk
     Route: 058
     Dates: start: 200812
  8. FOLCUR [Concomitant]
     Indication: RHEUMATOID ARTHRITIS
     Dosage: 5 mg, weekly
     Dates: start: 200812
  9. PREDNISOLONE [Concomitant]
     Indication: RHEUMATOID ARTHRITIS
     Dosage: 4 mg, 1x/day
     Dates: start: 200903, end: 201202
  10. PREDNISOLONE [Concomitant]
     Dosage: 1 mg, 1x/day
     Dates: start: 201202
  11. PREDNISOLONE [Concomitant]
     Dosage: 2.5 UNK, 1x/day
     Route: 048
     Dates: start: 200903
  12. PANTOPRAZOLE [Concomitant]
     Indication: RHEUMATOID ARTHRITIS
     Dosage: 40 mg, 1x/day
     Dates: start: 200903
  13. PANTOPRAZOLE [Concomitant]
     Dosage: 20 mg, 1x/day
     Dates: start: 200903
  14. CELEBREX [Concomitant]
     Indication: RHEUMATOID ARTHRITIS
     Dosage: 200 mg, as needed
     Dates: start: 201104
  15. TRAMAGIT [Concomitant]
     Indication: RHEUMATOID ARTHRITIS
     Dosage: 100 mg, 1x/day
     Route: 048
     Dates: start: 200904
  16. REWODINA [Concomitant]
     Indication: RHEUMATOID ARTHRITIS
     Dosage: 75 UNK, as required 1/2 per day
     Dates: start: 200903

REACTIONS (5)
  - Dyspnoea [Recovered/Resolved]
  - Dyspnoea [Recovered/Resolved]
  - Productive cough [Recovered/Resolved]
  - Dyspnoea [Recovered/Resolved]
  - Productive cough [Recovered/Resolved]
